FAERS Safety Report 8196829-7 (Version None)
Quarter: 2012Q1

REPORT INFORMATION
  Report Type: 
  Country: None (occurrence: None)
  Receive Date: 20120309
  Receipt Date: 20120307
  Transmission Date: 20120608
  Serious: Yes (Hospitalization)
  Sender: FDA-Public Use
  Company Number: PHHY2012AT015108

PATIENT
  Sex: Female

DRUGS (1)
  1. ZOLEDRONOC ACID [Suspect]
     Indication: OSTEOPOROSIS
     Route: 042
     Dates: start: 20120221

REACTIONS (6)
  - CIRCULATORY COLLAPSE [None]
  - FALL [None]
  - TACHYCARDIA [None]
  - ATRIAL FIBRILLATION [None]
  - HYPERTENSIVE CRISIS [None]
  - BLOOD PRESSURE INCREASED [None]
